FAERS Safety Report 7437192-6 (Version None)
Quarter: 2011Q2

REPORT INFORMATION
  Report Type: 
  Country: None (occurrence: None)
  Receive Date: 20110421
  Receipt Date: 20110421
  Transmission Date: 20111010
  Serious: Yes (Hospitalization)
  Sender: FDA-Public Use
  Company Number: None

PATIENT
  Sex: Male
  Weight: 71.8 kg

DRUGS (5)
  1. PREDNISONE [Suspect]
     Dosage: 375 MG
  2. VINCRISTINE SULFATE [Suspect]
     Dosage: 2 MG
  3. CYCLOPHOSPHAMIDE [Suspect]
     Dosage: 1370 MG
  4. DOXORUBICIN HCL [Suspect]
     Dosage: 92 MG
  5. RITUXAN [Suspect]
     Dosage: 690 MG

REACTIONS (4)
  - NEUTROPENIA [None]
  - NAUSEA [None]
  - VOMITING [None]
  - PYREXIA [None]
